FAERS Safety Report 7329016-2 (Version None)
Quarter: 2011Q1

REPORT INFORMATION
  Report Type: 
  Country: None (occurrence: None)
  Receive Date: 20110303
  Receipt Date: 20110224
  Transmission Date: 20110831
  Serious: Yes (Hospitalization)
  Sender: FDA-Public Use
  Company Number: DE-BRISTOL-MYERS SQUIBB COMPANY-15574569

PATIENT
  Sex: Female

DRUGS (1)
  1. MITOMYCIN [Suspect]
     Indication: BREAST CANCER
     Dosage: INJ
     Route: 065
     Dates: start: 20100906

REACTIONS (2)
  - PULMONARY HYPERTENSION [None]
  - PNEUMONIA [None]
